FAERS Safety Report 15159126 (Version 1)
Quarter: 2018Q3

REPORT INFORMATION
  Report Type: Spontaneous
  Country: HR (occurrence: HR)
  Receive Date: 20180718
  Receipt Date: 20180718
  Transmission Date: 20181010
  Serious: Yes (Other)
  Sender: FDA-Public Use
  Company Number: HR-TEVA-2018-HR-927771

PATIENT
  Age: 63 Year
  Sex: Female

DRUGS (5)
  1. EUTHYROX [Concomitant]
     Active Substance: LEVOTHYROXINE SODIUM
     Route: 048
     Dates: start: 1994
  2. TEGRETOL XR [Suspect]
     Active Substance: CARBAMAZEPINE
     Route: 048
     Dates: start: 2009
  3. MARTEFARIN [Interacting]
     Active Substance: WARFARIN
     Dosage: 9 MILLIGRAM DAILY;
     Route: 048
     Dates: start: 20180320
  4. CONTROLOC [Concomitant]
     Active Substance: PANTOPRAZOLE SODIUM
     Route: 048
     Dates: start: 2009
  5. LYVAM [Concomitant]
     Route: 048
     Dates: start: 20180221

REACTIONS (3)
  - Haematuria [Recovered/Resolved]
  - Drug interaction [Recovered/Resolved]
  - Overdose [Recovered/Resolved]

NARRATIVE: CASE EVENT DATE: 2017
